FAERS Safety Report 11364061 (Version 1)
Quarter: 2015Q3

REPORT INFORMATION
  Report Type: Spontaneous
  Country: US (occurrence: None)
  Receive Date: 20150810
  Receipt Date: 20150810
  Transmission Date: 20151125
  Serious: No
  Sender: FDA-Public Use
  Company Number: None

PATIENT
  Age: 49 Year
  Sex: Female
  Weight: 54.43 kg

DRUGS (1)
  1. PERILOX 0.12% PHILIPS/DISCUS [Suspect]
     Active Substance: CHLORHEXIDINE
     Indication: GINGIVAL DISORDER
     Dosage: 1/2 OUNCE  TWICE DAILY ORAL RINSE
     Route: 048
     Dates: start: 20150730, end: 20150806

REACTIONS (6)
  - Gingival ulceration [None]
  - Tongue ulceration [None]
  - Gingivitis [None]
  - Lymphadenopathy [None]
  - Drug hypersensitivity [None]
  - Mouth ulceration [None]

NARRATIVE: CASE EVENT DATE: 20150806
